FAERS Safety Report 5159115-5 (Version None)
Quarter: 2006Q4

REPORT INFORMATION
  Report Type: 
  Country: None (occurrence: None)
  Receive Date: 20061116
  Receipt Date: 20061005
  Transmission Date: 20070319
  Serious: Yes (Hospitalization)
  Sender: FDA-Public Use
  Company Number: 13532775

PATIENT
  Sex: Female

DRUGS (10)
  1. EMSAM [Suspect]
     Indication: DEPRESSION
     Dates: start: 20060910, end: 20060927
  2. LANTUS [Concomitant]
  3. HUMULIN INSULIN [Concomitant]
  4. LESCOL [Concomitant]
  5. LISINOPRIL [Concomitant]
  6. LEVOXYL [Concomitant]
  7. NEURONTIN [Concomitant]
  8. LASIX [Concomitant]
  9. POTASSIUM CHLORIDE [Concomitant]
  10. ASPIRIN [Concomitant]

REACTIONS (3)
  - HYPOGLYCAEMIA [None]
  - MENTAL STATUS CHANGES [None]
  - SYNCOPE [None]
